FAERS Safety Report 18554204 (Version 2)
Quarter: 2020Q4

REPORT INFORMATION
  Report Type: Other
  Country: US (occurrence: US)
  Receive Date: 20201127
  Receipt Date: 20201222
  Transmission Date: 20210114
  Serious: No
  Sender: FDA-Public Use
  Company Number: US-SUNOVION-2020SUN003470

PATIENT
  Sex: Male

DRUGS (1)
  1. KYNMOBI [Suspect]
     Active Substance: APOMORPHINE HYDROCHLORIDE
     Route: 060

REACTIONS (4)
  - Fall [Unknown]
  - Freezing phenomenon [Unknown]
  - Dyspnoea [Unknown]
  - Drooling [Unknown]
